FAERS Safety Report 7775803-6 (Version None)
Quarter: 2011Q3

REPORT INFORMATION
  Report Type: 
  Country: None (occurrence: None)
  Receive Date: 20110923
  Receipt Date: 20110908
  Transmission Date: 20111222
  Serious: Yes (Death)
  Sender: FDA-Public Use
  Company Number: GB-BAUSCH-2011BL006202

PATIENT
  Age: 64 Year
  Sex: Male
  Weight: 95 kg

DRUGS (4)
  1. SULINDAC [Concomitant]
  2. ALENDRONIC ACID [Concomitant]
  3. WARFARIN SODIUM [Concomitant]
     Indication: DEEP VEIN THROMBOSIS
  4. PREDNISOLONE [Suspect]
     Indication: POLYMYALGIA RHEUMATICA
     Route: 048
     Dates: start: 20100819

REACTIONS (11)
  - HYPOXIA [None]
  - SEPTIC SHOCK [None]
  - PNEUMOTHORAX [None]
  - PLEURAL EFFUSION [None]
  - PULMONARY EMBOLISM [None]
  - OESOPHAGEAL PERFORATION [None]
  - ABDOMINAL DISTENSION [None]
  - ABDOMINAL PAIN UPPER [None]
  - CARDIAC ARREST [None]
  - MEDIASTINAL DISORDER [None]
  - SEPSIS [None]
